FAERS Safety Report 10449349 (Version 1)
Quarter: 2014Q3

REPORT INFORMATION
  Report Type: Spontaneous
  Country: US (occurrence: None)
  Receive Date: 20140911
  Receipt Date: 20140911
  Transmission Date: 20150326
  Serious: Yes (Hospitalization)
  Sender: FDA-Public Use
  Company Number: None

PATIENT
  Age: 41 Year
  Sex: Female
  Weight: 76 kg

DRUGS (2)
  1. CONJUGATED ESTROGEN [Suspect]
     Active Substance: ESTROGENS, CONJUGATED
     Indication: HORMONE REPLACEMENT THERAPY
     Dosage: 1, QD, ORAL
     Route: 048
  2. DULOXETINE [Concomitant]
     Active Substance: DULOXETINE

REACTIONS (2)
  - Chest pain [None]
  - Pulmonary embolism [None]

NARRATIVE: CASE EVENT DATE: 20140320
